FAERS Safety Report 24886504 (Version 1)
Quarter: 2025Q1

REPORT INFORMATION
  Report Type: Spontaneous
  Country: US (occurrence: US)
  Receive Date: 20250126
  Receipt Date: 20250126
  Transmission Date: 20250409
  Serious: No
  Sender: DR REDDYS
  Company Number: US-DRL-USA-USA/2025/01/000784

PATIENT
  Age: 19 Year
  Sex: Female

DRUGS (1)
  1. ACCUTANE [Suspect]
     Active Substance: ISOTRETINOIN
     Indication: Product used for unknown indication
     Route: 065
     Dates: start: 20241127

REACTIONS (2)
  - Circumstance or information capable of leading to medication error [Unknown]
  - Product dose omission issue [Unknown]

NARRATIVE: CASE EVENT DATE: 20250112
